FAERS Safety Report 6968552-5 (Version None)
Quarter: 2010Q3

REPORT INFORMATION
  Report Type: 
  Country: None (occurrence: None)
  Receive Date: 20100903
  Receipt Date: 20100903
  Transmission Date: 20110219
  Serious: Yes (Other)
  Sender: FDA-Public Use
  Company Number: None

PATIENT
  Sex: Female
  Weight: 64.8644 kg

DRUGS (1)
  1. NAPROXEN [Suspect]
     Indication: NERVE INJURY
     Dosage: 1 TABLET TWICE A DAY BY MOUTH
     Route: 048
     Dates: start: 20100810, end: 20100815

REACTIONS (3)
  - DIZZINESS [None]
  - HYPERTENSION [None]
  - IMPAIRED DRIVING ABILITY [None]
